FAERS Safety Report 11909983 (Version 1)
Quarter: 2016Q1

REPORT INFORMATION
  Report Type: Spontaneous
  Country: US (occurrence: None)
  Receive Date: 20160111
  Receipt Date: 20160111
  Transmission Date: 20160526
  Serious: Yes (Life-Threatening, Disabling)
  Sender: FDA-Public Use
  Company Number: None

PATIENT
  Age: 80 Year
  Sex: Female
  Weight: 70.31 kg

DRUGS (8)
  1. SINEMET [Suspect]
     Active Substance: CARBIDOPA\LEVODOPA
     Indication: TREMOR
     Route: 048
     Dates: start: 20151204, end: 20151210
  2. COUMADIN [Concomitant]
     Active Substance: WARFARIN SODIUM
  3. ACIDOPHILUS [Concomitant]
     Active Substance: LACTOBACILLUS ACIDOPHILUS
  4. NORVASC [Concomitant]
     Active Substance: AMLODIPINE BESYLATE
  5. XALATAN [Concomitant]
     Active Substance: LATANOPROST
  6. METROPOLOL [Concomitant]
     Active Substance: METOPROLOL
  7. ATORVISTATIN CALCIUM [Concomitant]
  8. TIMOLOL MALEATE. [Concomitant]
     Active Substance: TIMOLOL MALEATE

REACTIONS (10)
  - Feeding disorder [None]
  - Dizziness [None]
  - Tremor [None]
  - Pneumonia [None]
  - Dementia [None]
  - Confusional state [None]
  - Seizure [None]
  - Urinary tract infection [None]
  - Vertigo [None]
  - Musculoskeletal disorder [None]

NARRATIVE: CASE EVENT DATE: 20151210
